FAERS Safety Report 16204621 (Version 1)
Quarter: 2019Q2

REPORT INFORMATION
  Report Type: Spontaneous
  Country: FR (occurrence: FR)
  Receive Date: 20190416
  Receipt Date: 20190416
  Transmission Date: 20190711
  Serious: Yes (Other)
  Sender: FDA-Public Use
  Company Number: FR-MYLANLABS-2019M1036443

PATIENT
  Age: 2 Year
  Sex: Male
  Weight: 16.5 kg

DRUGS (4)
  1. DAFALGAN CODEINE [Concomitant]
     Active Substance: ACETAMINOPHEN\CODEINE PHOSPHATE
     Dosage: 300 MILLIGRAM
     Route: 054
  2. RIVOTRIL [Concomitant]
     Active Substance: CLONAZEPAM
     Dosage: UNK
  3. ADVILMED [Concomitant]
     Active Substance: IBUPROFEN
     Dosage: UNK
  4. NALBUPHINE MYLAN 20 MG/ 2ML, SOLUTION INJECTABLE (IV-SC-IM) [Suspect]
     Active Substance: NALBUPHINE
     Indication: FEMUR FRACTURE
     Dosage: 20 MILLIGRAM
     Route: 054
     Dates: start: 20181015, end: 20181015

REACTIONS (6)
  - Agitation [Recovered/Resolved]
  - Confusional state [Recovered/Resolved]
  - Incorrect dose administered [Recovered/Resolved]
  - Hallucination [Recovered/Resolved]
  - Product prescribing error [Recovered/Resolved]
  - Device computer issue [Recovered/Resolved]

NARRATIVE: CASE EVENT DATE: 20181015
